FAERS Safety Report 5240076-5 (Version None)
Quarter: 2007Q1

REPORT INFORMATION
  Report Type: 
  Country: None (occurrence: None)
  Receive Date: 20070216
  Receipt Date: 20070207
  Transmission Date: 20070707
  Serious: Yes (Death, Hospitalization)
  Sender: FDA-Public Use
  Company Number: CZ-PFIZER INC-2007010221

PATIENT
  Age: 66 Year
  Sex: Male

DRUGS (1)
  1. ATORVASTATIN [Suspect]
     Indication: HYPERLIPIDAEMIA
     Route: 048
     Dates: start: 20060901, end: 20070202

REACTIONS (5)
  - BRADYCARDIA [None]
  - CARDIAC FAILURE ACUTE [None]
  - HEPATIC FAILURE [None]
  - OLIGURIA [None]
  - RENAL FAILURE [None]
